FAERS Safety Report 10712946 (Version 2)
Quarter: 2015Q1

REPORT INFORMATION
  Report Type: Report from Study
  Country: US (occurrence: US)
  Receive Date: 20150115
  Receipt Date: 20150206
  Transmission Date: 20150721
  Serious: Yes (Death)
  Sender: FDA-Public Use
  Company Number: PHEH2015US000989

PATIENT
  Sex: Male

DRUGS (3)
  1. ZOMETA [Suspect]
     Active Substance: ZOLEDRONIC ACID
     Indication: LUNG CARCINOMA CELL TYPE UNSPECIFIED STAGE 0
     Dosage: 4 MG PER 100ML, UNK
     Route: 065
  2. ZOMETA [Suspect]
     Active Substance: ZOLEDRONIC ACID
     Indication: METASTASES TO CENTRAL NERVOUS SYSTEM
  3. ZOMETA [Suspect]
     Active Substance: ZOLEDRONIC ACID
     Indication: PULMONARY EMBOLISM

REACTIONS (2)
  - Malignant neoplasm progression [Fatal]
  - Lung carcinoma cell type unspecified stage 0 [Fatal]
